FAERS Safety Report 11422954 (Version 1)
Quarter: 2015Q3

REPORT INFORMATION
  Report Type: Spontaneous
  Country: CN (occurrence: CN)
  Receive Date: 20150827
  Receipt Date: 20150827
  Transmission Date: 20151125
  Serious: Yes (Hospitalization)
  Sender: FDA-Public Use
  Company Number: CN-UNITED THERAPEUTICS-UNT-2015-010272

PATIENT
  Age: 49 Year
  Sex: Female
  Weight: 50 kg

DRUGS (2)
  1. REMODULIN [Suspect]
     Active Substance: TREPROSTINIL
     Dosage: 0.020 ?G/KG, CONTINUING
     Route: 058
  2. REMODULIN [Suspect]
     Active Substance: TREPROSTINIL
     Indication: PULMONARY ARTERIAL HYPERTENSION
     Dosage: 0.010 ?G/KG, CONTINUING
     Route: 058
     Dates: start: 20150610

REACTIONS (3)
  - Ascites [Unknown]
  - Pulmonary arterial hypertension [Unknown]
  - Pericardial disease [Unknown]

NARRATIVE: CASE EVENT DATE: 2015
